FAERS Safety Report 23454715 (Version 1)
Quarter: 2024Q1

REPORT INFORMATION
  Report Type: Spontaneous
  Country: CO (occurrence: CO)
  Receive Date: 20240130
  Receipt Date: 20240130
  Transmission Date: 20240410
  Serious: Yes (Death, Hospitalization)
  Sender: FDA-Public Use
  Company Number: CO-RECORDATI-2023002967

PATIENT

DRUGS (1)
  1. PASIREOTIDE [Suspect]
     Active Substance: PASIREOTIDE
     Indication: Product used for unknown indication
     Dosage: UNK
     Dates: start: 20230412

REACTIONS (1)
  - Infection [Fatal]

NARRATIVE: CASE EVENT DATE: 20230101
